FAERS Safety Report 6875965-9 (Version None)
Quarter: 2010Q3

REPORT INFORMATION
  Report Type: 
  Country: None (occurrence: None)
  Receive Date: 20100727
  Receipt Date: 20070712
  Transmission Date: 20110219
  Serious: Yes (Hospitalization, Other)
  Sender: FDA-Public Use
  Company Number: US-PFIZER INC-2006151382

PATIENT
  Sex: Female
  Weight: 99.8 kg

DRUGS (6)
  1. CELEBREX [Suspect]
     Indication: ARTHRITIS
     Route: 048
     Dates: start: 20010701
  2. VIOXX [Suspect]
     Indication: OSTEOARTHRITIS
     Dosage: 12.5MG AND 25MG,ONCE OR TWICE DAILY
     Route: 048
     Dates: start: 20000101, end: 20020716
  3. ACETAMINOPHEN [Concomitant]
     Dates: start: 20000613
  4. ACETYLSALICYLIC ACID SRT [Concomitant]
  5. PLAVIX [Concomitant]
     Dates: start: 20001005
  6. LIPITOR [Concomitant]
     Dates: start: 20001013

REACTIONS (2)
  - CEREBROVASCULAR ACCIDENT [None]
  - DEEP VEIN THROMBOSIS [None]
